FAERS Safety Report 6742841-1 (Version None)
Quarter: 2010Q2

REPORT INFORMATION
  Report Type: 
  Country: None (occurrence: None)
  Receive Date: 20100525
  Receipt Date: 20100511
  Transmission Date: 20101027
  Serious: Yes (Other)
  Sender: FDA-Public Use
  Company Number: 2010US-33787

PATIENT
  Age: 6 Year
  Sex: Male

DRUGS (1)
  1. CETIRIZINE HCL [Suspect]
     Indication: POSTNASAL DRIP
     Dosage: 5 ML QD, ORAL
     Route: 048
     Dates: start: 20090923, end: 20090928

REACTIONS (5)
  - ABNORMAL BEHAVIOUR [None]
  - BONE PAIN [None]
  - DYSKINESIA [None]
  - TIC [None]
  - TORTICOLLIS [None]
